FAERS Safety Report 16158903 (Version 1)
Quarter: 2019Q2

REPORT INFORMATION
  Report Type: Spontaneous
  Country: US (occurrence: US)
  Receive Date: 20190403
  Receipt Date: 20190403
  Transmission Date: 20190711
  Serious: Yes (Disabling)
  Sender: FDA-Public Use
  Company Number: None

PATIENT
  Age: 48 Year
  Sex: Female
  Weight: 61.65 kg

DRUGS (1)
  1. SOMADERM TRANSDERMAL GEL [Suspect]
     Active Substance: HOMEOPATHICS
     Indication: PRODUCT USED FOR UNKNOWN INDICATION
     Dosage: ?          QUANTITY:2 DROP(S);?
     Route: 061
     Dates: start: 20180722, end: 20190201

REACTIONS (6)
  - Arthralgia [None]
  - Vision blurred [None]
  - Palpitations [None]
  - Headache [None]
  - Depression [None]
  - Anxiety [None]

NARRATIVE: CASE EVENT DATE: 20190208
